FAERS Safety Report 6170044-0 (Version None)
Quarter: 2009Q2

REPORT INFORMATION
  Report Type: 
  Country: None (occurrence: None)
  Receive Date: 20090428
  Receipt Date: 20090417
  Transmission Date: 20091009
  Serious: Yes (Other)
  Sender: FDA-Public Use
  Company Number: BE-WYE-G03533209

PATIENT
  Sex: Female

DRUGS (3)
  1. EFFEXOR [Suspect]
     Indication: BORDERLINE PERSONALITY DISORDER
     Route: 048
     Dates: start: 20080301
  2. LORAZEPAM [Concomitant]
     Route: 048
     Dates: start: 20080301
  3. ALPRAZOLAM [Concomitant]
     Route: 048
     Dates: start: 20080801

REACTIONS (1)
  - FOETAL GROWTH RETARDATION [None]
